FAERS Safety Report 6983753-8 (Version None)
Quarter: 2010Q3

REPORT INFORMATION
  Report Type: 
  Country: None (occurrence: None)
  Receive Date: 20100914
  Receipt Date: 20051125
  Transmission Date: 20110219
  Serious: Yes (Hospitalization)
  Sender: FDA-Public Use
  Company Number: US-WYE-H07144108

PATIENT
  Age: 21 Year
  Sex: Female

DRUGS (4)
  1. ADVIL LIQUI-GELS [Suspect]
     Dosage: NOT PROVIDED
     Route: 048
     Dates: start: 20010218, end: 20010218
  2. NAPROXEN [Suspect]
     Dosage: NOT PROVIDED
     Route: 048
     Dates: start: 20010218, end: 20010218
  3. MIDOL [Suspect]
     Dosage: NOT PROVIDED
     Route: 048
     Dates: start: 20010218, end: 20010218
  4. CIPRO [Suspect]
     Dosage: 250 MG
     Route: 048
     Dates: start: 20010218, end: 20010218

REACTIONS (2)
  - OVERDOSE [None]
  - TACHYCARDIA [None]
